FAERS Safety Report 10359124 (Version 1)
Quarter: 2014Q3

REPORT INFORMATION
  Report Type: Spontaneous
  Country: US (occurrence: None)
  Receive Date: 20140731
  Receipt Date: 20140731
  Transmission Date: 20150326
  Serious: Yes (Hospitalization)
  Sender: FDA-Public Use
  Company Number: None

PATIENT
  Age: 70 Year
  Sex: Male
  Weight: 71.9 kg

DRUGS (1)
  1. ALLOPURINOL. [Suspect]
     Active Substance: ALLOPURINOL
     Indication: GOUT
     Dosage: 1 TABLET QD ORAL
     Route: 048

REACTIONS (3)
  - Dysphagia [None]
  - Stevens-Johnson syndrome [None]
  - Pyrexia [None]

NARRATIVE: CASE EVENT DATE: 20140729
